FAERS Safety Report 24906007 (Version 3)
Quarter: 2025Q1

REPORT INFORMATION
  Report Type: Spontaneous
  Country: AR (occurrence: AR)
  Receive Date: 20250130
  Receipt Date: 20250314
  Transmission Date: 20250409
  Serious: Yes (Hospitalization, Other)
  Sender: AMGEN
  Company Number: AR-PFIZER INC-202500018063

PATIENT
  Age: 81 Year
  Sex: Female

DRUGS (6)
  1. ENBREL [Suspect]
     Active Substance: ETANERCEPT
     Indication: Rheumatoid arthritis
     Dosage: 50 MG, WEEKLY
     Route: 030
     Dates: start: 20170718
  2. ENBREL [Suspect]
     Active Substance: ETANERCEPT
     Route: 030
     Dates: end: 20241106
  3. LEVOTHYROXINE [Concomitant]
     Active Substance: LEVOTHYROXINE
     Indication: Hypothyroidism
     Dosage: 1 DF, DAILY
  4. Drimux a [Concomitant]
     Indication: Hypertension
     Dosage: 1 DF, DAILY
  5. Atenix [Concomitant]
     Indication: Depression
     Dosage: 1 DF, DAILY
  6. Troken [Concomitant]
     Indication: Platelet count decreased
     Dosage: 1 DF, DAILY

REACTIONS (5)
  - Renal failure [Recovering/Resolving]
  - Anaemia [Recovering/Resolving]
  - Therapeutic product effect incomplete [Not Recovered/Not Resolved]
  - Incorrect route of product administration [Unknown]
  - Off label use [Unknown]

NARRATIVE: CASE EVENT DATE: 20170718
